FAERS Safety Report 11661097 (Version 2)
Quarter: 2015Q4

REPORT INFORMATION
  Report Type: Report from Study
  Country: AR (occurrence: AR)
  Receive Date: 20151026
  Receipt Date: 20151111
  Transmission Date: 20160304
  Serious: Yes (Other)
  Sender: FDA-Public Use
  Company Number: PHHY2015AR134352

PATIENT
  Sex: Male

DRUGS (3)
  1. ULTIBRO BREEZHALER [Suspect]
     Active Substance: GLYCOPYRRONIUM\INDACATEROL
     Indication: LUNG DISORDER
     Dosage: 1 DF, QD
     Route: 065
  2. ULTIBRO BREEZHALER [Suspect]
     Active Substance: GLYCOPYRRONIUM\INDACATEROL
     Dosage: UNK
     Route: 065
  3. ONBREZ BREEZHALER [Suspect]
     Active Substance: INDACATEROL
     Indication: LUNG DISORDER
     Dosage: 1 DF, QD
     Route: 065
     Dates: start: 201510

REACTIONS (13)
  - Pulmonary function test decreased [Recovering/Resolving]
  - Nervousness [Recovering/Resolving]
  - Visual acuity reduced [Not Recovered/Not Resolved]
  - Lung disorder [Recovering/Resolving]
  - Drug ineffective for unapproved indication [Unknown]
  - Conversion disorder [Recovering/Resolving]
  - Aphonia [Unknown]
  - Deafness [Unknown]
  - Blindness [Unknown]
  - Visual impairment [Recovering/Resolving]
  - Drug dispensing error [Unknown]
  - Condition aggravated [Recovering/Resolving]
  - Hypoacusis [Not Recovered/Not Resolved]
